FAERS Safety Report 13390204 (Version 1)
Quarter: 2017Q1

REPORT INFORMATION
  Report Type: Spontaneous
  Country: US (occurrence: US)
  Receive Date: 20170330
  Receipt Date: 20170330
  Transmission Date: 20170429
  Serious: Yes (Other)
  Sender: FDA-Public Use
  Company Number: None

PATIENT
  Age: 49 Year
  Sex: Female
  Weight: 70.31 kg

DRUGS (9)
  1. VITAMIN C [Concomitant]
     Active Substance: ASCORBIC ACID
  2. COMPLETE MULTI [Concomitant]
  3. BUSPIRONE HCL [Concomitant]
     Active Substance: BUSPIRONE HYDROCHLORIDE
  4. LORAZEPAM. [Concomitant]
     Active Substance: LORAZEPAM
  5. L-LYSINE [Concomitant]
     Active Substance: LYSINE
  6. TRAZODONE [Concomitant]
     Active Substance: TRAZODONE HYDROCHLORIDE
  7. VITAMIN B12 [Concomitant]
     Active Substance: CYANOCOBALAMIN
  8. HYDROXYZ HCL 25MG TAB [Suspect]
     Active Substance: HYDROXYZINE HYDROCHLORIDE
     Indication: RASH
     Dosage: 1 3 TIMES A DAY AS NEEDED MOUTH
     Route: 048
     Dates: start: 20170223, end: 20170312
  9. HYDROXYZ HCL 25MG TAB [Suspect]
     Active Substance: HYDROXYZINE HYDROCHLORIDE
     Indication: ANXIETY
     Dosage: 1 3 TIMES A DAY AS NEEDED MOUTH
     Route: 048
     Dates: start: 20170223, end: 20170312

REACTIONS (6)
  - Dizziness [None]
  - Swollen tongue [None]
  - Dysarthria [None]
  - Confusional state [None]
  - Hypoaesthesia oral [None]
  - Heart rate increased [None]

NARRATIVE: CASE EVENT DATE: 20170310
